FAERS Safety Report 6913325-2 (Version None)
Quarter: 2010Q3

REPORT INFORMATION
  Report Type: 
  Country: None (occurrence: None)
  Receive Date: 20100809
  Receipt Date: 20100727
  Transmission Date: 20110219
  Serious: Yes (Other)
  Sender: FDA-Public Use
  Company Number: GB-ELI_LILLY_AND_COMPANY-GB201007007106

PATIENT
  Age: 63 Year
  Sex: Female
  Weight: 81.5 kg

DRUGS (4)
  1. BYETTA [Suspect]
     Dosage: 5 UG, UNKNOWN
     Route: 058
     Dates: start: 20091019
  2. FUROSEMIDE [Concomitant]
     Dosage: 20 MG, DAILY (1/D)
     Route: 048
  3. GLICLAZIDE [Concomitant]
     Indication: DIABETES MELLITUS
     Dosage: 80 MG, 2/D
     Route: 048
  4. LOSARTAN POSTASSIUM [Concomitant]
     Dosage: 100 MG, UNKNOWN
     Route: 048

REACTIONS (1)
  - RENAL FAILURE CHRONIC [None]
